FAERS Safety Report 4791848-2 (Version None)
Quarter: 2005Q4

REPORT INFORMATION
  Report Type: 
  Country: None (occurrence: None)
  Receive Date: 20051007
  Receipt Date: 20050927
  Transmission Date: 20060501
  Serious: Yes (Hospitalization)
  Sender: FDA-Public Use
  Company Number: NO-JNJFOC-20050906354

PATIENT
  Sex: Female

DRUGS (4)
  1. RISPERDAL CONSTA [Suspect]
     Route: 030
  2. RISPERDAL CONSTA [Suspect]
     Indication: DRUG USE FOR UNKNOWN INDICATION
     Route: 030
  3. VIVAL [Concomitant]
  4. AKINETON [Concomitant]
     Dosage: TAKEN PRN

REACTIONS (7)
  - BLOOD CREATINE PHOSPHOKINASE INCREASED [None]
  - LEUKOCYTOSIS [None]
  - PNEUMONIA [None]
  - PYREXIA [None]
  - RESPIRATION ABNORMAL [None]
  - RESPIRATORY ARREST [None]
  - TACHYCARDIA [None]
